FAERS Safety Report 17498543 (Version 2)
Quarter: 2020Q1

REPORT INFORMATION
  Report Type: Spontaneous
  Country: US (occurrence: US)
  Receive Date: 20200304
  Receipt Date: 20200331
  Transmission Date: 20200409
  Serious: No
  Sender: FDA-Public Use
  Company Number: US-ALKERMES INC.-ALK-2020-000876

PATIENT
  Age: 41 Year
  Sex: Female
  Weight: 67.57 kg

DRUGS (3)
  1. VIVITROL [Suspect]
     Active Substance: NALTREXONE
     Indication: ALCOHOLISM
     Dosage: 380 MG, QMO
     Route: 030
     Dates: start: 20200222
  2. VIVITROL [Suspect]
     Active Substance: NALTREXONE
     Dosage: 380 MG, QMO
     Route: 030
     Dates: start: 20191226, end: 20191226
  3. TOPAMAX [Concomitant]
     Active Substance: TOPIRAMATE
     Indication: PRODUCT USED FOR UNKNOWN INDICATION
     Dosage: 100 MG, UNK
     Route: 065

REACTIONS (10)
  - Irritability [Unknown]
  - Back pain [Recovered/Resolved]
  - Product dose omission [Recovered/Resolved]
  - Somnolence [Recovered/Resolved]
  - Inappropriate schedule of product administration [Recovered/Resolved]
  - Feeling abnormal [Unknown]
  - Constipation [Recovered/Resolved]
  - Injection site reaction [Recovered/Resolved]
  - Therapeutic response shortened [Unknown]
  - Emotional distress [Unknown]

NARRATIVE: CASE EVENT DATE: 202002
